FAERS Safety Report 6767076-8 (Version None)
Quarter: 2010Q2

REPORT INFORMATION
  Report Type: 
  Country: None (occurrence: None)
  Receive Date: 20100613
  Receipt Date: 20100607
  Transmission Date: 20101027
  Serious: Yes (Death, Hospitalization)
  Sender: FDA-Public Use
  Company Number: US-RB-008337-10

PATIENT
  Age: 44 Year
  Sex: Male

DRUGS (7)
  1. SUBOXONE [Suspect]
     Indication: PAIN
     Route: 060
     Dates: start: 20100301, end: 20100523
  2. SUBOXONE [Suspect]
     Route: 060
     Dates: start: 20100301, end: 20100523
  3. MORPHINE [Suspect]
     Indication: PAIN
     Route: 048
     Dates: start: 20100524, end: 20100603
  4. VALIUM [Suspect]
     Dosage: UNKNOWN DOSING DETAILS
     Route: 048
     Dates: start: 20100524, end: 20100603
  5. CELEXA [Concomitant]
     Indication: DEPRESSION
     Dosage: UNKNOWN DOSING DETAILS
     Route: 065
     Dates: end: 20100603
  6. PRILOSEC [Concomitant]
     Indication: GASTROOESOPHAGEAL REFLUX DISEASE
     Dosage: UNKNOWN DOSING DETAILS
     Route: 065
     Dates: end: 20100603
  7. UNKNOWN BLOOD PRESSURE MEDICATION [Concomitant]
     Dosage: UNKNOWN DOSING DETAILS
     Route: 065
     Dates: end: 20100603

REACTIONS (4)
  - BACK PAIN [None]
  - DEATH [None]
  - INTERVERTEBRAL DISC PROTRUSION [None]
  - WEIGHT INCREASED [None]
